FAERS Safety Report 18656234 (Version 5)
Quarter: 2021Q3

REPORT INFORMATION
  Report Type: Spontaneous
  Country: GB (occurrence: GB)
  Receive Date: 20201223
  Receipt Date: 20210722
  Transmission Date: 20211014
  Serious: Yes (Other)
  Sender: FDA-Public Use
  Company Number: GB-MYLANLABS-2019M1107567

PATIENT
  Age: 35 Year
  Sex: Male

DRUGS (1)
  1. CLOZARIL [Suspect]
     Active Substance: CLOZAPINE
     Indication: SCHIZOPHRENIA
     Dosage: UNK
     Route: 048
     Dates: start: 20171010

REACTIONS (6)
  - Thrombocytopenia [Unknown]
  - Anaemia [Unknown]
  - Eosinophilia [Recovered/Resolved]
  - Neutrophil count increased [Unknown]
  - White blood cell count increased [Unknown]
  - Differential white blood cell count abnormal [Recovering/Resolving]

NARRATIVE: CASE EVENT DATE: 20191106
